FAERS Safety Report 17000625 (Version 3)
Quarter: 2019Q4

REPORT INFORMATION
  Report Type: Report from Study
  Country: CO (occurrence: CO)
  Receive Date: 20191106
  Receipt Date: 20191209
  Transmission Date: 20200122
  Serious: Yes (Hospitalization, Other)
  Sender: FDA-Public Use
  Company Number: CO-ASTELLAS-2019US043850

PATIENT
  Age: 40 Year
  Sex: Male

DRUGS (6)
  1. TACROLIMUS. [Suspect]
     Active Substance: TACROLIMUS
     Dosage: 3 MG (3 CAPSULES OF 1 MG), ONCE DAILY
     Route: 048
     Dates: start: 20191026, end: 20191110
  2. ATORVASTATIN [Concomitant]
     Active Substance: ATORVASTATIN
     Indication: BLOOD CHOLESTEROL ABNORMAL
     Dosage: 20 MG, 1 DAY IN BETWEEN
     Route: 048
     Dates: start: 20131115
  3. TACROLIMUS. [Suspect]
     Active Substance: TACROLIMUS
     Route: 048
     Dates: start: 20191111
  4. PREDNISOLONE. [Concomitant]
     Active Substance: PREDNISOLONE
     Indication: RENAL DISORDER PROPHYLAXIS
     Route: 048
     Dates: start: 20131115
  5. TACROLIMUS. [Suspect]
     Active Substance: TACROLIMUS
     Indication: RENAL TRANSPLANT
     Dosage: 5 MG (1 CAPSULE OF 5 MG), ONCE DAILY
     Route: 048
     Dates: start: 20131115, end: 20191025
  6. MYCOPHENOLATE [Concomitant]
     Active Substance: MYCOPHENOLIC ACID
     Indication: RENAL DISORDER PROPHYLAXIS
     Dosage: 500 MG, 2 EVERY 12 HOURS
     Route: 048
     Dates: start: 20131115

REACTIONS (4)
  - Pyrexia [Recovered/Resolved]
  - Orchitis noninfective [Recovering/Resolving]
  - Dizziness [Recovering/Resolving]
  - Discomfort [Recovering/Resolving]

NARRATIVE: CASE EVENT DATE: 201908
